FAERS Safety Report 10835549 (Version 1)
Quarter: 2015Q1

REPORT INFORMATION
  Report Type: Report from Study
  Country: US (occurrence: US)
  Receive Date: 20150219
  Receipt Date: 20150219
  Transmission Date: 20150721
  Serious: No
  Sender: FDA-Public Use
  Company Number: US-ABBVIE-14P-163-1204332-00

PATIENT
  Sex: Female
  Weight: 77.18 kg

DRUGS (4)
  1. HUMIRA [Suspect]
     Active Substance: ADALIMUMAB
     Indication: RHEUMATOID ARTHRITIS
     Route: 058
     Dates: start: 2005, end: 2007
  2. LEVOTHYROXINE [Concomitant]
     Active Substance: LEVOTHYROXINE
     Indication: AUTOIMMUNE THYROIDITIS
  3. HUMIRA [Suspect]
     Active Substance: ADALIMUMAB
     Dosage: SPRING 2013
     Route: 058
     Dates: end: 2013
  4. HUMIRA [Suspect]
     Active Substance: ADALIMUMAB
     Indication: AUTOIMMUNE THYROIDITIS
     Route: 058
     Dates: start: 2007

REACTIONS (3)
  - Psoriasis [Recovered/Resolved]
  - Skin exfoliation [Recovered/Resolved]
  - Acne [Recovered/Resolved]
